FAERS Safety Report 6902954-8 (Version None)
Quarter: 2010Q3

REPORT INFORMATION
  Report Type: 
  Country: None (occurrence: None)
  Receive Date: 20100803
  Receipt Date: 20080616
  Transmission Date: 20110219
  Serious: No
  Sender: FDA-Public Use
  Company Number: US-PFIZER INC-2008050536

PATIENT
  Sex: Female
  Weight: 77.2 kg

DRUGS (6)
  1. LYRICA [Suspect]
     Indication: FIBROMYALGIA
     Dates: start: 20080501
  2. PLAQUENIL [Concomitant]
  3. MESALAMINE [Concomitant]
  4. IBUPROFEN [Concomitant]
  5. VITAMIN D [Concomitant]
  6. ASCORBIC ACID [Concomitant]

REACTIONS (2)
  - DIZZINESS [None]
  - WEIGHT INCREASED [None]
